FAERS Safety Report 9759144 (Version 1)
Quarter: 2013Q4

REPORT INFORMATION
  Report Type: Not Available
  Country: GB (occurrence: GB)
  Receive Date: 20131216
  Receipt Date: 20131216
  Transmission Date: 20140711
  Serious: Yes (Other)
  Sender: FDA-Public Use
  Company Number: GB-ASTELLAS-2013EU010929

PATIENT
  Age: 59 Year
  Sex: Male

DRUGS (2)
  1. BETMIGA [Suspect]
     Indication: HYPERTONIC BLADDER
     Dosage: 50 MG, UID/QD
     Route: 048
     Dates: start: 20131010, end: 20131029
  2. LANSOPRAZOLE [Concomitant]
     Dosage: UNK
     Route: 048

REACTIONS (2)
  - Rash generalised [Recovering/Resolving]
  - Aphthous stomatitis [Recovering/Resolving]
